FAERS Safety Report 4330855-0 (Version None)
Quarter: 2004Q1

REPORT INFORMATION
  Report Type: 
  Country: None (occurrence: None)
  Receive Date: 20040331
  Receipt Date: 20040319
  Transmission Date: 20041129
  Serious: Yes (Hospitalization)
  Sender: FDA-Public Use
  Company Number: HQWYE015322MAR04

PATIENT
  Age: 9 Year
  Sex: Male
  Weight: 47.22 kg

DRUGS (10)
  1. EFFEXOR XR [Suspect]
     Indication: DEPRESSION
     Dosage: SEE IMAGE
     Route: 048
     Dates: start: 20040201, end: 20040301
  2. EFFEXOR XR [Suspect]
     Indication: HOSTILITY
     Dosage: SEE IMAGE
     Route: 048
     Dates: start: 20040201, end: 20040301
  3. EFFEXOR XR [Suspect]
     Indication: SUICIDAL IDEATION
     Dosage: SEE IMAGE
     Route: 048
     Dates: start: 20040201, end: 20040301
  4. EFFEXOR XR [Suspect]
     Indication: DEPRESSION
     Dosage: SEE IMAGE
     Route: 048
     Dates: start: 20040301
  5. EFFEXOR XR [Suspect]
     Indication: HOSTILITY
     Dosage: SEE IMAGE
     Route: 048
     Dates: start: 20040301
  6. EFFEXOR XR [Suspect]
     Indication: SUICIDAL IDEATION
     Dosage: SEE IMAGE
     Route: 048
     Dates: start: 20040301
  7. SEROQUEL [Suspect]
     Indication: DEPRESSION
     Dosage: DAILY DOSING,
     Dates: start: 20040201
  8. SEROQUEL [Suspect]
     Indication: HOSTILITY
     Dosage: DAILY DOSING,
     Dates: start: 20040201
  9. SEROQUEL [Suspect]
     Indication: SUICIDAL IDEATION
     Dosage: DAILY DOSING,
     Dates: start: 20040201
  10. REMERON [Concomitant]

REACTIONS (5)
  - ABNORMAL BEHAVIOUR [None]
  - ANGER [None]
  - CONDITION AGGRAVATED [None]
  - HOSTILITY [None]
  - SUICIDAL IDEATION [None]
